FAERS Safety Report 14340069 (Version 2)
Quarter: 2018Q1

REPORT INFORMATION
  Report Type: Report from Study
  Country: US (occurrence: US)
  Receive Date: 20171231
  Receipt Date: 20180130
  Transmission Date: 20180509
  Serious: Yes (Other)
  Sender: FDA-Public Use
  Company Number: US-TEVA-2017-US-840003

PATIENT
  Age: 30 Year
  Sex: Male

DRUGS (1)
  1. CLOZAPINE. [Suspect]
     Active Substance: CLOZAPINE
     Route: 048

REACTIONS (1)
  - Granulocytopenia [Unknown]

NARRATIVE: CASE EVENT DATE: 20171220
